FAERS Safety Report 6564987-3 (Version None)
Quarter: 2010Q1

REPORT INFORMATION
  Report Type: 
  Country: None (occurrence: None)
  Receive Date: 20100201
  Receipt Date: 20100122
  Transmission Date: 20100710
  Serious: Yes (Hospitalization)
  Sender: FDA-Public Use
  Company Number: JP-PFIZER INC-2010009846

PATIENT
  Age: 78 Year
  Sex: Female
  Weight: 43 kg

DRUGS (9)
  1. PREDNISOLONE AND PREDNISOLONE STEAGLATE [Suspect]
     Indication: RHEUMATOID ARTHRITIS
     Dosage: 1 MG, 1X/DAY
     Route: 048
     Dates: start: 19970425
  2. ENBREL [Suspect]
     Indication: RHEUMATOID ARTHRITIS
     Dosage: 25 MG, WEEKLY
     Route: 058
     Dates: start: 20080414, end: 20090119
  3. RHEUMATREX [Suspect]
     Indication: RHEUMATOID ARTHRITIS
     Dosage: UNK
     Route: 048
     Dates: start: 19990817, end: 20090126
  4. TAKEPRON [Concomitant]
     Indication: REFLUX OESOPHAGITIS
     Dosage: 15 MG, 1X/DAY
     Route: 048
     Dates: start: 20040325
  5. BLOPRESS [Concomitant]
     Indication: HYPERTENSION
     Dosage: 8 MG, SINGLE
     Route: 048
  6. ACETYLSALICYLIC ACID [Concomitant]
     Dosage: UNK
     Route: 065
     Dates: end: 20090101
  7. NORVASC [Concomitant]
     Indication: HYPERTENSION
     Dosage: 8 MG, WEEKLY
     Route: 048
  8. LIPITOR [Concomitant]
     Indication: HYPERLIPIDAEMIA
     Dosage: 10 MG, 1X/DAY
     Route: 048
  9. CALCITRIOL [Concomitant]
     Indication: OSTEOPOROSIS
     Dosage: 0.5 MCG, 1X/DAY
     Route: 048
     Dates: start: 19990817

REACTIONS (3)
  - EOSINOPHILIC PNEUMONIA [None]
  - HYPERSENSITIVITY [None]
  - RHEUMATOID ARTHRITIS [None]
